FAERS Safety Report 23207919 (Version 1)
Quarter: 2023Q4

REPORT INFORMATION
  Report Type: Report from Study
  Country: US (occurrence: US)
  Receive Date: 20231121
  Receipt Date: 20231121
  Transmission Date: 20240110
  Serious: Yes (Hospitalization, Other)
  Sender: FDA-Public Use
  Company Number: US-ABBVIE-5418980

PATIENT
  Sex: Female
  Weight: 68 kg

DRUGS (1)
  1. HUMIRA [Suspect]
     Active Substance: ADALIMUMAB
     Indication: Psoriatic arthropathy
     Dosage: FORM STRENGTH: 40 MILLIGRAM?CITRATE FREE
     Route: 058
     Dates: start: 20211019, end: 2023

REACTIONS (7)
  - Peripheral swelling [Unknown]
  - Peripheral swelling [Unknown]
  - Localised infection [Recovered/Resolved]
  - Osteomyelitis [Not Recovered/Not Resolved]
  - Escherichia sepsis [Recovered/Resolved]
  - Arthritis [Recovered/Resolved]
  - Localised infection [Unknown]

NARRATIVE: CASE EVENT DATE: 20230101
